FAERS Safety Report 9426844 (Version 1)
Quarter: 2013Q3

REPORT INFORMATION
  Report Type: Spontaneous
  Country: US (occurrence: US)
  Receive Date: 20130730
  Receipt Date: 20130730
  Transmission Date: 20140515
  Serious: Yes (Other)
  Sender: FDA-Public Use
  Company Number: US-SANOFI-AVENTIS-2013SA047051

PATIENT
  Sex: Female
  Weight: 83.91 kg

DRUGS (7)
  1. AMBIEN [Suspect]
     Indication: SLEEP DISORDER
     Route: 065
  2. PERCOCET [Concomitant]
     Dosage: 5-325 TWICE AS NEEDED
  3. OXYCONTIN [Concomitant]
  4. LEVOTHYROXINE [Concomitant]
     Indication: BLOOD CHOLESTEROL
  5. PRAVASTATIN SODIUM [Concomitant]
     Indication: THYROID DISORDER
  6. METFORMIN [Concomitant]
     Indication: DIABETES MELLITUS
  7. LYRICA [Concomitant]
     Indication: FIBROMYALGIA

REACTIONS (4)
  - Hallucination [Recovered/Resolved]
  - Somnambulism [Recovered/Resolved]
  - Libido increased [Recovered/Resolved]
  - Hypersensitivity [Unknown]
